FAERS Safety Report 8442721-X (Version None)
Quarter: 2012Q2

REPORT INFORMATION
  Report Type: 
  Country: None (occurrence: None)
  Receive Date: 20120615
  Receipt Date: 20120604
  Transmission Date: 20120825
  Serious: No
  Sender: FDA-Public Use
  Company Number: US-ASTRAZENECA-2012SE25304

PATIENT
  Age: 60 Year
  Sex: Male
  Weight: 56.7 kg

DRUGS (1)
  1. CRESTOR [Suspect]
     Route: 048

REACTIONS (3)
  - INTENTIONAL DRUG MISUSE [None]
  - BLOOD CHOLESTEROL INCREASED [None]
  - ARTERIOSCLEROSIS CORONARY ARTERY [None]
